FAERS Safety Report 8075718-2 (Version None)
Quarter: 2012Q1

REPORT INFORMATION
  Report Type: 
  Country: None (occurrence: None)
  Receive Date: 20120127
  Receipt Date: 20120117
  Transmission Date: 20120608
  Serious: Yes (Hospitalization)
  Sender: FDA-Public Use
  Company Number: US-AMGEN-USASP2012000893

PATIENT
  Age: 77 Year
  Sex: Female
  Weight: 62.132 kg

DRUGS (11)
  1. ENBREL [Suspect]
     Indication: RHEUMATOID ARTHRITIS
     Dosage: 50 MG, QWK
     Route: 058
     Dates: start: 20111116
  2. ACETYLSALICYLIC ACID SRT [Concomitant]
     Dosage: 81 MG, QD
  3. MTX                                /00113801/ [Concomitant]
     Indication: RHEUMATOID ARTHRITIS
     Dosage: 2.5 MG,(6 QWK)
     Route: 048
     Dates: start: 20111116
  4. COREG CR [Concomitant]
     Dosage: 3.25 MG, BID
  5. BONIVA [Concomitant]
     Indication: OSTEOPOROSIS
     Dosage: 150 MG, (MONTH)
     Route: 048
     Dates: start: 20090526
  6. CELEBREX [Concomitant]
     Indication: PAIN IN EXTREMITY
     Dosage: 200 MG, QD
     Route: 048
     Dates: start: 20091111
  7. LASIX [Concomitant]
     Dosage: 40 MG, QD
  8. FLAVOXATE [Concomitant]
     Dosage: 100 MG, BID
     Route: 048
     Dates: start: 20111222
  9. TRAMADOL                           /00599202/ [Concomitant]
     Indication: RHEUMATOID ARTHRITIS
     Dosage: 50 MG, UNK
     Route: 048
     Dates: start: 20101213
  10. LISINOPRIL [Concomitant]
     Dosage: 2.5 MG, QD
  11. SIMVASTATIN [Concomitant]
     Dosage: 10 MG, UNK

REACTIONS (2)
  - MYOCARDIAL INFARCTION [None]
  - STRESS CARDIOMYOPATHY [None]
